FAERS Safety Report 5657463-3 (Version None)
Quarter: 2008Q1

REPORT INFORMATION
  Report Type: 
  Country: None (occurrence: None)
  Receive Date: 20080310
  Receipt Date: 20080227
  Transmission Date: 20080703
  Serious: Yes (Hospitalization)
  Sender: FDA-Public Use
  Company Number: SE-PFIZER INC-2008017696

PATIENT
  Sex: Female

DRUGS (3)
  1. FLUCONAZOLE [Suspect]
     Route: 048
     Dates: start: 20070807, end: 20070813
  2. ACETAMINOPHEN [Suspect]
     Route: 048
  3. ZOLMITRIPTAN [Concomitant]

REACTIONS (2)
  - HEPATIC FAILURE [None]
  - RENAL FAILURE [None]
